FAERS Safety Report 10374024 (Version 1)
Quarter: 2014Q3

REPORT INFORMATION
  Report Type: Spontaneous
  Country: JP (occurrence: JP)
  Receive Date: 20140810
  Receipt Date: 20140810
  Transmission Date: 20150326
  Serious: No
  Sender: FDA-Public Use
  Company Number: PHHY2012JP134174

PATIENT

DRUGS (3)
  1. TASIGNA [Suspect]
     Active Substance: NILOTINIB
     Dosage: UNK
  2. TASIGNA [Suspect]
     Active Substance: NILOTINIB
     Dosage: UNK
  3. DASATINIB [Suspect]
     Active Substance: DASATINIB
     Dosage: 20 MG, UNK

REACTIONS (2)
  - Pleural effusion [Unknown]
  - Alopecia [Unknown]
